FAERS Safety Report 16424065 (Version 1)
Quarter: 2019Q2

REPORT INFORMATION
  Report Type: Report from Study
  Country: ES (occurrence: ES)
  Receive Date: 20190613
  Receipt Date: 20190613
  Transmission Date: 20190711
  Serious: Yes (Hospitalization)
  Sender: FDA-Public Use
  Company Number: ES-TEVA-2019-ES-1061290

PATIENT
  Sex: Male

DRUGS (2)
  1. MIDAZOLAM [Suspect]
     Active Substance: MIDAZOLAM HYDROCHLORIDE
     Indication: PRODUCT USED FOR UNKNOWN INDICATION
     Dosage: THE BOY RECEIVED A SUPRATHERAPEUTIC DOSE OF INTRAVENOUS MIDAZOLAM PREHOSPITALLY
     Route: 042
  2. FLUMAZENIL. [Suspect]
     Active Substance: FLUMAZENIL
     Indication: DEPRESSED LEVEL OF CONSCIOUSNESS
     Route: 065

REACTIONS (4)
  - Psychomotor hyperactivity [Unknown]
  - Respiratory depression [Unknown]
  - Toxicity to various agents [Unknown]
  - Coma [Recovered/Resolved]
